FAERS Safety Report 9396236 (Version 1)
Quarter: 2013Q3

REPORT INFORMATION
  Report Type: Spontaneous
  Country: US (occurrence: US)
  Receive Date: 20130711
  Receipt Date: 20130711
  Transmission Date: 20140515
  Serious: Yes (Other)
  Sender: FDA-Public Use
  Company Number: US-PFIZER INC-2013201572

PATIENT
  Age: 53 Year
  Sex: Female
  Weight: 108.86 kg

DRUGS (1)
  1. IBUPROFEN [Suspect]
     Dosage: 800 MG, SINGLE
     Route: 048

REACTIONS (2)
  - Intervertebral disc protrusion [Unknown]
  - Dysphagia [Unknown]
